FAERS Safety Report 9258005 (Version 1)
Quarter: 2013Q1

REPORT INFORMATION
  Report Type: Spontaneous
  Country: US (occurrence: None)
  Receive Date: 20121212
  Receipt Date: 20121212
  Transmission Date: 20140127
  Serious: No
  Sender: FDA-Public Use
  Company Number: 1207USA008192

PATIENT
  Age: 54 Year
  Sex: Female

DRUGS (8)
  1. VICTRELIS [Suspect]
     Indication: HEPATITIS C
     Route: 048
     Dates: start: 2012
  2. PEGINTRON [Suspect]
     Indication: CHRONIC HEPATITIS C
     Route: 058
     Dates: start: 201203
  3. RIBASPHERE [Suspect]
     Dates: start: 2012
  4. FLAXSEED (FLAXSEED) [Concomitant]
  5. CYANOCOBALAMIN (CYANOCOBALAMIN) [Concomitant]
  6. VITAMIN E (VITAMIN E) [Concomitant]
  7. PYRIDOXINE (PYRIDOXINE) [Concomitant]
  8. ASCORBIC ACID (ASCORBIC ACID) [Concomitant]

REACTIONS (7)
  - Vision blurred [None]
  - Weight decreased [None]
  - Nausea [None]
  - Anaemia [None]
  - Pain [None]
  - Arthralgia [None]
  - Fatigue [None]
